FAERS Safety Report 8207734-1 (Version None)
Quarter: 2012Q1

REPORT INFORMATION
  Report Type: 
  Country: None (occurrence: None)
  Receive Date: 20120313
  Receipt Date: 20120313
  Transmission Date: 20120608
  Serious: Yes (Hospitalization)
  Sender: FDA-Public Use
  Company Number: None

PATIENT
  Sex: Male
  Weight: 15.7 kg

DRUGS (10)
  1. CYTARABINE [Suspect]
     Dosage: 15510 MG
  2. ETOPOSIDE [Suspect]
     Dosage: 585 MG
  3. MITOXANTRONE [Concomitant]
  4. DOXORUBICIN HCL [Concomitant]
  5. FLUDARABINE PHOSPHATE [Concomitant]
  6. MITOXANTRONE HYDROCHLORIDE [Suspect]
     Dosage: 16.4 MG
  7. MYLOTARG [Suspect]
     Dosage: 2 MG
  8. BUSULFAN [Concomitant]
  9. ELSPAR [Suspect]
     Dosage: 4120 IU
  10. DAUNORUBICIN HCL [Suspect]
     Dosage: 100.5 MG

REACTIONS (1)
  - CARDIAC FAILURE [None]
